FAERS Safety Report 6439344-0 (Version None)
Quarter: 2009Q4

REPORT INFORMATION
  Report Type: 
  Country: None (occurrence: None)
  Receive Date: 20091113
  Receipt Date: 20091103
  Transmission Date: 20100525
  Serious: Yes (Other)
  Sender: FDA-Public Use
  Company Number: DE-BAYER-200937805GPV

PATIENT
  Sex: Female

DRUGS (2)
  1. MIRENA [Suspect]
     Indication: CONTRACEPTION
     Route: 015
  2. MIRENA [Suspect]
     Route: 015

REACTIONS (3)
  - COMPLICATION OF DEVICE REMOVAL [None]
  - DEVICE DISLOCATION [None]
  - NO ADVERSE EVENT [None]
